FAERS Safety Report 7041733-0 (Version None)
Quarter: 2010Q4

REPORT INFORMATION
  Report Type: 
  Country: None (occurrence: None)
  Receive Date: 20101013
  Receipt Date: 20091023
  Transmission Date: 20110411
  Serious: No
  Sender: FDA-Public Use
  Company Number: US-ASTRAZENECA-2009SE22265

PATIENT
  Age: 37 Year
  Sex: Female
  Weight: 86.2 kg

DRUGS (4)
  1. SYMBICORT [Suspect]
     Indication: ASTHMA
     Dosage: 320 MCG BID
     Route: 055
     Dates: start: 20080701, end: 20080801
  2. SYMBICORT [Suspect]
     Dosage: 640 MCG BID
     Route: 055
     Dates: start: 20080801, end: 20091022
  3. SYMBICORT [Suspect]
     Dosage: 320 MCG BID
     Route: 055
     Dates: start: 20091022
  4. NASONEX [Concomitant]
     Dosage: PRN
     Route: 045

REACTIONS (6)
  - ANXIETY [None]
  - BLEPHAROSPASM [None]
  - CHEST PAIN [None]
  - EXTRASYSTOLES [None]
  - HEART RATE INCREASED [None]
  - PANIC ATTACK [None]
